FAERS Safety Report 21969094 (Version 1)
Quarter: 2023Q1

REPORT INFORMATION
  Report Type: Spontaneous
  Country: JP (occurrence: JP)
  Receive Date: 20230208
  Receipt Date: 20230208
  Transmission Date: 20230418
  Serious: Yes (Other)
  Sender: FDA-Public Use
  Company Number: JP-SUNOVION-2023SMP001307

PATIENT
  Age: 75 Year
  Sex: Female

DRUGS (4)
  1. LATUDA [Suspect]
     Active Substance: LURASIDONE HYDROCHLORIDE
     Indication: Bipolar disorder
     Dosage: 10 MG, QD
     Route: 048
  2. LEXAPRO [Concomitant]
     Active Substance: ESCITALOPRAM OXALATE
     Dosage: 5 MG, QD
     Route: 048
  3. SULPIRIDE [Concomitant]
     Active Substance: SULPIRIDE
     Dosage: UNK
     Route: 065
  4. CARDIOVASCULAR SYSTEM [Concomitant]
     Dosage: UNK
     Route: 048

REACTIONS (5)
  - Bipolar disorder [Unknown]
  - Tremor [Unknown]
  - Off label use [Unknown]
  - Prescribed underdose [Unknown]
  - Incorrect product administration duration [Unknown]
